FAERS Safety Report 23333659 (Version 1)
Quarter: 2023Q4

REPORT INFORMATION
  Report Type: Spontaneous
  Country: US (occurrence: US)
  Receive Date: 20231222
  Receipt Date: 20231222
  Transmission Date: 20240109
  Serious: Yes (Hospitalization, Other)
  Sender: FDA-Public Use
  Company Number: US-Accord-391302

PATIENT
  Age: 79 Year
  Sex: Female
  Weight: 68.56 kg

DRUGS (5)
  1. CARBOPLATIN [Suspect]
     Active Substance: CARBOPLATIN
     Indication: Non-small cell lung cancer metastatic
     Dosage: 1Q3W
     Route: 042
  2. PEMETREXED [Suspect]
     Active Substance: PEMETREXED
     Indication: Non-small cell lung cancer metastatic
     Dosage: 1Q3W
     Route: 042
  3. PEMBROLIZUMAB [Suspect]
     Active Substance: PEMBROLIZUMAB
     Indication: Non-small cell lung cancer metastatic
     Dosage: 1Q3W
     Route: 042
  4. ONDANSETRON [Concomitant]
     Active Substance: ONDANSETRON
     Dates: start: 20231029
  5. LORAZEPAM [Concomitant]
     Active Substance: LORAZEPAM
     Dates: start: 20231029

REACTIONS (1)
  - Vomiting [Recovered/Resolved with Sequelae]

NARRATIVE: CASE EVENT DATE: 20231030
